FAERS Safety Report 6112366-5 (Version None)
Quarter: 2009Q1

REPORT INFORMATION
  Report Type: 
  Country: None (occurrence: None)
  Receive Date: 20090311
  Receipt Date: 20090311
  Transmission Date: 20090719
  Serious: Yes (Disabling, Other)
  Sender: FDA-Public Use
  Company Number: None

PATIENT
  Sex: Female
  Weight: 96.1626 kg

DRUGS (1)
  1. BUDEPRION SL [Suspect]
     Indication: DEPRESSION
     Dosage: 300MG XL 1 A DAY ORAL
     Route: 048
     Dates: start: 20070516, end: 20070702

REACTIONS (6)
  - ANXIETY [None]
  - DEPRESSION [None]
  - DIZZINESS [None]
  - FATIGUE [None]
  - HALLUCINATION [None]
  - LOSS OF CONSCIOUSNESS [None]
